FAERS Safety Report 23306436 (Version 1)
Quarter: 2023Q4

REPORT INFORMATION
  Report Type: Spontaneous
  Country: JP (occurrence: JP)
  Receive Date: 20231218
  Receipt Date: 20231218
  Transmission Date: 20240109
  Serious: Yes (Hospitalization)
  Sender: FDA-Public Use
  Company Number: JP-CHUGAI-2023043409

PATIENT
  Age: 53 Year
  Sex: Female

DRUGS (2)
  1. TAMIFLU [Suspect]
     Active Substance: OSELTAMIVIR PHOSPHATE
     Indication: Influenza
     Route: 065
  2. LANINAMIVIR OCTANOATE MONOHYDRATE [Suspect]
     Active Substance: LANINAMIVIR OCTANOATE MONOHYDRATE
     Indication: Influenza
     Route: 065
     Dates: start: 20231127

REACTIONS (2)
  - Tracheal stenosis [Unknown]
  - Urticaria [Recovered/Resolved]

NARRATIVE: CASE EVENT DATE: 20231130
